FAERS Safety Report 6435582-1 (Version None)
Quarter: 2009Q4

REPORT INFORMATION
  Report Type: 
  Country: None (occurrence: None)
  Receive Date: 20091110
  Receipt Date: 20071015
  Transmission Date: 20100525
  Serious: No
  Sender: FDA-Public Use
  Company Number: AECAN200700245

PATIENT
  Age: 35 Year
  Sex: Female

DRUGS (2)
  1. GAMUNEX [Suspect]
     Indication: HYPOGAMMAGLOBULINAEMIA
     Dosage: 200 ML;TOTAL;IV
     Route: 042
     Dates: start: 20070925, end: 20070925
  2. ANTIBIOTICS [Concomitant]

REACTIONS (6)
  - CHILLS [None]
  - HEADACHE [None]
  - INFUSION RELATED REACTION [None]
  - NAUSEA [None]
  - TACHYCARDIA [None]
  - VOMITING [None]
